FAERS Safety Report 6327974-6 (Version None)
Quarter: 2009Q3

REPORT INFORMATION
  Report Type: 
  Country: None (occurrence: None)
  Receive Date: 20090824
  Receipt Date: 20090813
  Transmission Date: 20100115
  Serious: Yes (Death)
  Sender: FDA-Public Use
  Company Number: 2009-03154

PATIENT
  Age: 49 Year
  Sex: Female

DRUGS (2)
  1. VELCADE [Suspect]
     Indication: MULTIPLE MYELOMA
     Dates: start: 20090601
  2. DEXAMETHASONE TAB [Suspect]
     Indication: MULTIPLE MYELOMA
     Dates: start: 20090601

REACTIONS (7)
  - DISEASE PROGRESSION [None]
  - DRUG INEFFECTIVE [None]
  - LEUKAEMIA PLASMACYTIC [None]
  - MULTI-ORGAN FAILURE [None]
  - PLASMACYTOMA [None]
  - SPINAL DISORDER [None]
  - THERAPY RESPONDER [None]
